FAERS Safety Report 8149641-9 (Version None)
Quarter: 2012Q1

REPORT INFORMATION
  Report Type: 
  Country: None (occurrence: None)
  Receive Date: 20120218
  Receipt Date: 20111109
  Transmission Date: 20120608
  Serious: No
  Sender: FDA-Public Use
  Company Number: US-ALLERGAN-1114746US

PATIENT

DRUGS (2)
  1. BOTOX COSMETIC [Suspect]
     Indication: SKIN WRINKLING
     Dosage: 1.5 CC, SINGLE
     Route: 030
     Dates: start: 20111108, end: 20111108
  2. BOTOX COSMETIC [Suspect]
     Dosage: UNK
     Dates: start: 20110101

REACTIONS (1)
  - INJECTION SITE PAIN [None]
